FAERS Safety Report 6023259-6 (Version None)
Quarter: 2008Q4

REPORT INFORMATION
  Report Type: 
  Country: None (occurrence: None)
  Receive Date: 20081230
  Receipt Date: 20081225
  Transmission Date: 20090506
  Serious: Yes (Death)
  Sender: FDA-Public Use
  Company Number: JP-SANOFI-SYNTHELABO-F01200801966

PATIENT
  Sex: Female
  Weight: 46 kg

DRUGS (13)
  1. CYANOCOBALAMIN [Concomitant]
     Route: 048
     Dates: start: 20070625
  2. SEDIEL [Concomitant]
     Dosage: 10 MG
     Route: 048
     Dates: start: 20070515
  3. NAUZELIN [Concomitant]
     Dosage: 10 MG
     Route: 048
     Dates: start: 20070903
  4. PAXIL [Concomitant]
     Dosage: 10 MG
     Route: 048
     Dates: start: 20070903
  5. MYSLEE [Concomitant]
     Dosage: 10 MG
     Route: 048
     Dates: start: 20070416
  6. URSO 250 [Concomitant]
     Route: 048
     Dates: start: 20070416
  7. DOGMATYL [Concomitant]
     Route: 048
     Dates: start: 20070501
  8. SELECTOL [Concomitant]
     Indication: HYPERTENSION
     Route: 048
     Dates: start: 20071106
  9. TANATRIL [Concomitant]
     Indication: HYPERTENSION
     Dosage: 5 MG
     Route: 048
     Dates: start: 20071106
  10. ARTIST [Concomitant]
     Indication: HYPERTENSION
     Dosage: 2.5 MG
     Route: 048
     Dates: start: 20071106
  11. OLMETEC [Concomitant]
     Indication: HYPERTENSION
     Dosage: 20 MG
     Route: 048
     Dates: start: 20071106
  12. ADALAT [Concomitant]
     Indication: HYPERTENSION
     Route: 048
     Dates: start: 20071106
  13. CLOPIDOGREL [Suspect]
     Indication: CEREBRAL INFARCTION
     Dosage: 50 MG
     Route: 048
     Dates: start: 20081001

REACTIONS (1)
  - DEATH [None]
